FAERS Safety Report 14685861 (Version 5)
Quarter: 2019Q3

REPORT INFORMATION
  Report Type: Spontaneous
  Country: US (occurrence: US)
  Receive Date: 20180327
  Receipt Date: 20190729
  Transmission Date: 20191004
  Serious: Yes (Death, Other)
  Sender: FDA-Public Use
  Company Number: US-ASTRAZENECA-2018SE35462

PATIENT
  Sex: Female

DRUGS (24)
  1. COMBIGAN [Concomitant]
     Active Substance: BRIMONIDINE TARTRATE\TIMOLOL MALEATE
  2. NEURONTIN [Concomitant]
     Active Substance: GABAPENTIN
  3. VITAMIN D3 [Concomitant]
     Active Substance: CHOLECALCIFEROL
  4. LABETALOL [Concomitant]
     Active Substance: LABETALOL\LABETALOL HYDROCHLORIDE
  5. SPIRONOLACTONE. [Concomitant]
     Active Substance: SPIRONOLACTONE
  6. AMLODIPINE [Concomitant]
     Active Substance: AMLODIPINE BESYLATE
  7. VITAMIN B12 [Concomitant]
     Active Substance: CYANOCOBALAMIN
  8. RESTORIL [Concomitant]
     Active Substance: TEMAZEPAM
  9. BYSTOLIC [Concomitant]
     Active Substance: NEBIVOLOL HYDROCHLORIDE
  10. POTASSIUM CHLORIDE. [Concomitant]
     Active Substance: POTASSIUM CHLORIDE
  11. NEXIUM [Suspect]
     Active Substance: ESOMEPRAZOLE MAGNESIUM
     Indication: PEPTIC ULCER
     Route: 048
     Dates: start: 20121128, end: 20130513
  12. PRILOSEC OTC [Suspect]
     Active Substance: OMEPRAZOLE MAGNESIUM
     Indication: PEPTIC ULCER
     Route: 048
     Dates: start: 2012, end: 20160319
  13. LOSARTAN. [Concomitant]
     Active Substance: LOSARTAN
  14. NEXIUM 24HR [Suspect]
     Active Substance: ESOMEPRAZOLE MAGNESIUM
     Indication: PEPTIC ULCER
     Route: 048
     Dates: start: 2012, end: 20160319
  15. CALCIUM WITH VITAMIN D1 [Concomitant]
  16. MIRALAX [Concomitant]
     Active Substance: POLYETHYLENE GLYCOL 3350
  17. NITROSTAT [Concomitant]
     Active Substance: NITROGLYCERIN
  18. FUROSEMIDE. [Concomitant]
     Active Substance: FUROSEMIDE
  19. NEXIUM [Suspect]
     Active Substance: ESOMEPRAZOLE MAGNESIUM
     Indication: PEPTIC ULCER
     Route: 048
     Dates: start: 2012, end: 20160319
  20. ELIQUIS [Concomitant]
     Active Substance: APIXABAN
  21. COLACE [Concomitant]
     Active Substance: DOCUSATE SODIUM
  22. PRILOSEC [Suspect]
     Active Substance: OMEPRAZOLE MAGNESIUM
     Indication: PEPTIC ULCER
     Route: 048
     Dates: start: 2012, end: 20160319
  23. PREVACID [Suspect]
     Active Substance: LANSOPRAZOLE
     Route: 065
  24. TYLENOL [Concomitant]
     Active Substance: ACETAMINOPHEN

REACTIONS (7)
  - Chronic kidney disease [Unknown]
  - Rebound acid hypersecretion [Unknown]
  - Bradycardia [Unknown]
  - Acute kidney injury [Unknown]
  - Hyperkalaemia [Unknown]
  - Renal injury [Recovered/Resolved]
  - Death [Fatal]
